FAERS Safety Report 9428871 (Version 1)
Quarter: 2013Q3

REPORT INFORMATION
  Report Type: Report from Study
  Country: US (occurrence: US)
  Receive Date: 20130730
  Receipt Date: 20130730
  Transmission Date: 20140515
  Serious: No
  Sender: FDA-Public Use
  Company Number: US-ABBOTT-12P-163-1023329-00

PATIENT
  Age: 56 Year
  Sex: Female
  Weight: 57.2 kg

DRUGS (5)
  1. NIASPAN (COATED) [Suspect]
     Indication: ANGIOPATHY
     Dosage: AT BEDTIME
     Dates: start: 20121212
  2. NIASPAN (COATED) [Suspect]
     Indication: APOLIPOPROTEIN ABNORMAL
  3. ASA [Concomitant]
     Indication: PRODUCT USED FOR UNKNOWN INDICATION
     Dosage: HALF OF A BABY DOSE
  4. PLAVIX [Concomitant]
     Indication: PRODUCT USED FOR UNKNOWN INDICATION
  5. ATORVASTATIN [Concomitant]
     Indication: PRODUCT USED FOR UNKNOWN INDICATION

REACTIONS (2)
  - Gastric disorder [Not Recovered/Not Resolved]
  - Nausea [Not Recovered/Not Resolved]
